FAERS Safety Report 16443957 (Version 8)
Quarter: 2021Q1

REPORT INFORMATION
  Report Type: Spontaneous
  Country: NZ (occurrence: NZ)
  Receive Date: 20190618
  Receipt Date: 20210204
  Transmission Date: 20210419
  Serious: Yes (Other)
  Sender: FDA-Public Use
  Company Number: NZ-SA-2019SA163071

PATIENT
  Age: 53 Year
  Sex: Female

DRUGS (8)
  1. ATORVASTATIN [Concomitant]
     Active Substance: ATORVASTATIN
     Indication: HYPERLIPIDAEMIA
     Dosage: UNK
  2. CLONIDINE. [Concomitant]
     Active Substance: CLONIDINE
     Indication: MENOPAUSAL SYMPTOMS
     Dosage: UNK
  3. CETRIZINE [Concomitant]
     Active Substance: CETIRIZINE HYDROCHLORIDE
     Indication: RHINITIS ALLERGIC
     Dosage: UNK
  4. CHOLECALCIFEROL [Concomitant]
     Active Substance: CHOLECALCIFEROL
     Indication: CALCIUM DEFICIENCY
     Dosage: UNK
  5. ALIROCUMAB [Suspect]
     Active Substance: ALIROCUMAB
     Indication: HYPERLIPIDAEMIA
     Dosage: 150 MG, QOW
     Route: 058
     Dates: start: 20180731
  6. CLOPIDOGREL [Concomitant]
     Active Substance: CLOPIDOGREL BISULFATE
     Indication: CEREBROVASCULAR ACCIDENT PROPHYLAXIS
     Dosage: UNK
  7. ALIROCUMAB [Suspect]
     Active Substance: ALIROCUMAB
     Indication: TYPE IIA HYPERLIPIDAEMIA
  8. EVINACUMAB. [Concomitant]
     Active Substance: EVINACUMAB
     Indication: TYPE IIA HYPERLIPIDAEMIA
     Dosage: 300 MG, WEEKLY
     Route: 058

REACTIONS (2)
  - Cataract [Recovered/Resolved]
  - Cataract [Recovered/Resolved]

NARRATIVE: CASE EVENT DATE: 201812
